FAERS Safety Report 11780278 (Version 1)
Quarter: 2015Q4

REPORT INFORMATION
  Report Type: Spontaneous
  Country: US (occurrence: US)
  Receive Date: 20151126
  Receipt Date: 20151126
  Transmission Date: 20160305
  Serious: No
  Sender: FDA-Public Use
  Company Number: US-JNJFOC-20151001504

PATIENT
  Age: 54 Year
  Sex: Female
  Weight: 63.5 kg

DRUGS (2)
  1. TYLENOL ARTHRITIS PAIN [Suspect]
     Active Substance: ACETAMINOPHEN
     Route: 048
  2. TYLENOL ARTHRITIS PAIN [Suspect]
     Active Substance: ACETAMINOPHEN
     Indication: HEADACHE
     Route: 048
     Dates: start: 20151001, end: 20151001

REACTIONS (1)
  - Expired product administered [Unknown]

NARRATIVE: CASE EVENT DATE: 20151001
